FAERS Safety Report 25412066 (Version 1)
Quarter: 2025Q2

REPORT INFORMATION
  Report Type: Spontaneous
  Country: GB (occurrence: GB)
  Receive Date: 20250609
  Receipt Date: 20250609
  Transmission Date: 20250717
  Serious: Yes (Hospitalization, Other)
  Sender: MYLAN
  Company Number: GB-MYLANLABS-2025M1018162

PATIENT
  Sex: Male

DRUGS (1)
  1. CLOZAPINE [Suspect]
     Active Substance: CLOZAPINE
     Indication: Schizophrenia

REACTIONS (4)
  - Schizophrenia [Not Recovered/Not Resolved]
  - Cardiomyopathy [Recovered/Resolved]
  - Cardiac failure [Unknown]
  - Poor venous access [Unknown]

NARRATIVE: CASE EVENT DATE: 20250101
